FAERS Safety Report 19946461 (Version 1)
Quarter: 2021Q4

REPORT INFORMATION
  Report Type: Spontaneous
  Country: DE (occurrence: DE)
  Receive Date: 20211012
  Receipt Date: 20211012
  Transmission Date: 20220303
  Serious: Yes (Hospitalization)
  Sender: FDA-Public Use
  Company Number: DE-ADRED-06513-01

PATIENT
  Age: 48 Year
  Sex: Male
  Weight: 130 kg

DRUGS (6)
  1. VENLAFAXINE [Suspect]
     Active Substance: VENLAFAXINE HYDROCHLORIDE
     Indication: Product used for unknown indication
     Dosage: 150 MG, 1-1-0-0, RETARD-KAPSELN
     Route: 048
  2. RISPERIDONE [Suspect]
     Active Substance: RISPERIDONE
     Indication: Product used for unknown indication
     Dosage: 1 MG, 0-0-0-1, TABLET
     Route: 048
  3. QUETIAPINE [Suspect]
     Active Substance: QUETIAPINE
     Indication: Product used for unknown indication
     Dosage: 150 MG, 0-0-0-2, TABLET
     Route: 048
  4. AMLODIPINE BESILATE W/HYDROCHLOROTHIAZIDE [Concomitant]
     Dosage: 40/10/25 MG, 1-0-0-0, TABLETTEN
     Route: 048
  5. LEVOTHYROXINE [Concomitant]
     Active Substance: LEVOTHYROXINE
     Dosage: 50 ?G, 1-0-0-0, TABLETTEN
     Route: 048
  6. DOXAZOSIN [Concomitant]
     Active Substance: DOXAZOSIN MESYLATE
     Dosage: 2 MG, 0-0-0-1, TABLETTEN
     Route: 048

REACTIONS (3)
  - Depression [Unknown]
  - Depressed mood [Unknown]
  - Psychotic symptom [Unknown]
